FAERS Safety Report 10167406 (Version 1)
Quarter: 2014Q2

REPORT INFORMATION
  Report Type: Spontaneous
  Country: PL (occurrence: PL)
  Receive Date: 20140512
  Receipt Date: 20140512
  Transmission Date: 20141212
  Serious: Yes (Other)
  Sender: FDA-Public Use
  Company Number: PL-PFIZER INC-2014124749

PATIENT
  Age: 49 Year
  Sex: Male

DRUGS (1)
  1. DALACIN C [Suspect]
     Dosage: 300 MG, FOR 8 DAYS

REACTIONS (1)
  - Myasthenia gravis [Unknown]
